FAERS Safety Report 6502036-3 (Version None)
Quarter: 2009Q4

REPORT INFORMATION
  Report Type: 
  Country: None (occurrence: None)
  Receive Date: 20091214
  Receipt Date: 20091130
  Transmission Date: 20100525
  Serious: Yes (Hospitalization, Other)
  Sender: FDA-Public Use
  Company Number: 1-20878889

PATIENT
  Age: 3 Month
  Sex: Male
  Weight: 6.8 kg

DRUGS (7)
  1. AMMONUL         INJECTION 10% [Suspect]
     Indication: HYPERAMMONAEMIA
     Dosage: 250 MG/KG ONCE, INTRAVENOUS
     Route: 042
     Dates: start: 20091120, end: 20090101
  2. ARGININE [Concomitant]
  3. CITRULINE [Concomitant]
  4. L-CARNITINE [Concomitant]
  5. PHENOBARBITAL [Concomitant]
  6. PREDNISONE [Concomitant]
  7. TACROLIMUS [Concomitant]

REACTIONS (8)
  - BLOOD LACTIC ACID DECREASED [None]
  - HYPERAMMONAEMIA [None]
  - HYPERTENSION [None]
  - INFUSION RELATED REACTION [None]
  - LETHARGY [None]
  - PCO2 DECREASED [None]
  - TACHYCARDIA [None]
  - TACHYPNOEA [None]
